FAERS Safety Report 5921578-2 (Version None)
Quarter: 2008Q3

REPORT INFORMATION
  Report Type: 
  Country: None (occurrence: None)
  Receive Date: 20080909
  Receipt Date: 20080428
  Transmission Date: 20090109
  Serious: Yes (Hospitalization, Other)
  Sender: FDA-Public Use
  Company Number: 163-20785-08031297

PATIENT
  Age: 58 Year
  Sex: Male
  Weight: 84.1 kg

DRUGS (34)
  1. THALOMID [Suspect]
     Indication: MULTIPLE MYELOMA
     Dosage: 100 MG, Q HS, ORAL ; 200 MG, ORAL
     Route: 048
     Dates: start: 20060210, end: 20060422
  2. THALOMID [Suspect]
     Indication: MULTIPLE MYELOMA
     Dosage: 100 MG, Q HS, ORAL ; 200 MG, ORAL
     Route: 048
     Dates: start: 20050820
  3. DEXAMETHASONE TAB [Suspect]
     Indication: MULTIPLE MYELOMA
     Dosage: 20 MG, QD DAYS 1-4 EVERY 21, ORAL ; 40 MG
     Route: 048
     Dates: start: 20060201, end: 20060401
  4. DEXAMETHASONE TAB [Suspect]
     Indication: MULTIPLE MYELOMA
     Dosage: 20 MG, QD DAYS 1-4 EVERY 21, ORAL ; 40 MG
     Route: 048
     Dates: start: 20050820
  5. VELCADE [Suspect]
     Indication: MULTIPLE MYELOMA
     Dosage: 1 MG/M2 ; 1 MG/M2
     Dates: end: 20051004
  6. VELCADE [Suspect]
     Indication: MULTIPLE MYELOMA
     Dosage: 1 MG/M2 ; 1 MG/M2
     Dates: start: 20050817
  7. CISPLATIN [Suspect]
     Indication: MULTIPLE MYELOMA
     Dosage: 10 MG/M2 ; 5 MG/M2
     Dates: end: 20050930
  8. CISPLATIN [Suspect]
     Indication: MULTIPLE MYELOMA
     Dosage: 10 MG/M2 ; 5 MG/M2
     Dates: start: 20050820
  9. ADRIAMYCIN PFS [Suspect]
     Indication: MULTIPLE MYELOMA
     Dosage: 10 MG/M2 ; 10 MG/M2
     Dates: end: 20050930
  10. ADRIAMYCIN PFS [Suspect]
     Indication: MULTIPLE MYELOMA
     Dosage: 10 MG/M2 ; 10 MG/M2
     Dates: start: 20050820
  11. CYCLOPHOSPHAMIDE [Suspect]
     Indication: MULTIPLE MYELOMA
     Dosage: 400 MG/M2 ; 400 MG/M2
     Dates: end: 20050930
  12. CYCLOPHOSPHAMIDE [Suspect]
     Indication: MULTIPLE MYELOMA
     Dosage: 400 MG/M2 ; 400 MG/M2
     Dates: start: 20050820
  13. ETOPOSIDE [Suspect]
     Indication: MULTIPLE MYELOMA
     Dosage: 40 MG/M2 ; 40 MG/M2
     Dates: end: 20050930
  14. ETOPOSIDE [Suspect]
     Indication: MULTIPLE MYELOMA
     Dosage: 40 MG/M2 ; 40 MG/M2
     Dates: start: 20050820
  15. MELPHALAN (MELPHALAN) [Suspect]
     Indication: MULTIPLE MYELOMA
     Dosage: 200 MG/M2 ; 200 MG/M2
     Dates: end: 20060117
  16. MELPHALAN (MELPHALAN) [Suspect]
     Indication: MULTIPLE MYELOMA
     Dosage: 200 MG/M2 ; 200 MG/M2
     Dates: start: 20051030
  17. HEPARIN FLUSH (HEPARIN) [Concomitant]
  18. PANTOPRAZOLE SODIUM [Concomitant]
  19. LOVENOX [Concomitant]
  20. LEVAQUIN [Concomitant]
  21. DIFLUCAN [Concomitant]
  22. ACYCLOVIR [Concomitant]
  23. AMBIEN [Concomitant]
  24. ZANTAC 150 [Concomitant]
  25. NEXIUM [Concomitant]
  26. PROCRIT [Concomitant]
  27. OCTREOTIDE ACETATE [Concomitant]
  28. VANCOMYCIN [Concomitant]
  29. FLAGYL [Concomitant]
  30. SERTRALINE [Concomitant]
  31. EPOGEN [Concomitant]
  32. FOLIC ACID [Concomitant]
  33. MULTIVITAMINS (MULTIVITAMINS) (TABLETS) [Concomitant]
  34. MAGNESIUM (MAGNESIUM) [Concomitant]

REACTIONS (5)
  - COLITIS [None]
  - DELIRIUM [None]
  - HAEMATOCHEZIA [None]
  - MUCOSAL INFLAMMATION [None]
  - THROMBOCYTOPENIA [None]
